FAERS Safety Report 10692013 (Version 2)
Quarter: 2015Q2

REPORT INFORMATION
  Report Type: Report from Study
  Country: TR (occurrence: TR)
  Receive Date: 20150106
  Receipt Date: 20150529
  Transmission Date: 20150821
  Serious: Yes (Hospitalization)
  Sender: FDA-Public Use
  Company Number: TR-NOVOPROD-433822

PATIENT
  Sex: Female
  Weight: 3.3 kg

DRUGS (4)
  1. NOVORAPID [Suspect]
     Active Substance: INSULIN ASPART
     Indication: TYPE 2 DIABETES MELLITUS
     Dosage: 24 U, QD
     Route: 064
     Dates: start: 20140514, end: 20141115
  2. GYNOFERON                          /02994301/ [Concomitant]
     Indication: MINERAL SUPPLEMENTATION
     Dosage: QD
     Route: 064
     Dates: start: 201406, end: 20141115
  3. INSULIN DETEMIR FLEXPEN [Suspect]
     Active Substance: INSULIN DETEMIR
     Indication: TYPE 2 DIABETES MELLITUS
     Dosage: 8 U, QD
     Route: 064
     Dates: start: 20140514, end: 20141115
  4. DECAVIT                            /06014801/ [Concomitant]
     Indication: VITAMIN SUPPLEMENTATION
     Dosage: QD
     Route: 064
     Dates: start: 201404, end: 201406

REACTIONS (4)
  - Clavicle fracture [Recovering/Resolving]
  - Hypoglycaemia neonatal [Recovering/Resolving]
  - Neonatal respiratory distress syndrome [Recovering/Resolving]
  - Foetal exposure during pregnancy [Recovered/Resolved]

NARRATIVE: CASE EVENT DATE: 20140514
